FAERS Safety Report 6568358-5 (Version None)
Quarter: 2010Q1

REPORT INFORMATION
  Report Type: 
  Country: None (occurrence: None)
  Receive Date: 20100203
  Receipt Date: 20100125
  Transmission Date: 20100710
  Serious: Yes (Death)
  Sender: FDA-Public Use
  Company Number: ES-ELI_LILLY_AND_COMPANY-ES201001005072

PATIENT
  Sex: Male
  Weight: 76 kg

DRUGS (12)
  1. PEMETREXED [Suspect]
     Indication: NON-SMALL CELL LUNG CANCER
     Dosage: 500 MG/M2, ON D1 EVERY 21 DAYS
     Route: 042
     Dates: start: 20091028
  2. CISPLATIN [Suspect]
     Indication: NON-SMALL CELL LUNG CANCER
     Dosage: 75 MG/M2, ON D1 EVERY 21 DAYS
     Route: 042
     Dates: start: 20091028
  3. FOLIC ACID [Concomitant]
     Indication: PROPHYLAXIS
     Dates: start: 20091027
  4. VIT B12 [Concomitant]
     Indication: PROPHYLAXIS
     Dates: start: 20091027
  5. DEXAMETHASONE [Concomitant]
     Indication: PROPHYLAXIS
     Dates: start: 20091027, end: 20091218
  6. RAMIPRIL [Concomitant]
     Indication: HYPERTENSION
     Dates: start: 19890101
  7. ISOSORBIDE MONONITRATE [Concomitant]
     Indication: ACUTE MYOCARDIAL INFARCTION
     Dates: start: 19890101
  8. SIMVASTATIN [Concomitant]
     Indication: DYSLIPIDAEMIA
     Dates: start: 19890101
  9. AAS [Concomitant]
     Indication: ACUTE MYOCARDIAL INFARCTION
     Dates: start: 19890101
  10. APREPITANT [Concomitant]
     Indication: PROPHYLAXIS
     Dates: start: 20091217, end: 20091219
  11. MORPHINE [Concomitant]
     Indication: PAIN
     Dates: start: 20091028
  12. OMEPRAZOLE [Concomitant]
     Dates: start: 19890101, end: 20091219

REACTIONS (1)
  - DEATH [None]
